FAERS Safety Report 8548531-7 (Version None)
Quarter: 2012Q3

REPORT INFORMATION
  Report Type: 
  Country: None (occurrence: None)
  Receive Date: 20120730
  Receipt Date: 20120725
  Transmission Date: 20120928
  Serious: No
  Sender: FDA-Public Use
  Company Number: US-BAYER-2012-075700

PATIENT

DRUGS (3)
  1. ALEVE (CAPLET) [Suspect]
     Indication: HEADACHE
     Dosage: 2 UNK, UNK
  2. IBUPROFEN [Suspect]
     Indication: HEADACHE
     Dosage: 4 DF, UNK
  3. EXCEDRIN [ACETYLSALICYLIC ACID,CAFFEINE,SALICYLAMIDE] [Suspect]
     Indication: HEADACHE
     Dosage: 3 DF, UNK

REACTIONS (1)
  - HEADACHE [None]
